FAERS Safety Report 5482129-2 (Version None)
Quarter: 2007Q4

REPORT INFORMATION
  Report Type: 
  Country: None (occurrence: None)
  Receive Date: 20071011
  Receipt Date: 20071004
  Transmission Date: 20080405
  Serious: Yes (Other)
  Sender: FDA-Public Use
  Company Number: HQWYE876702JUL07

PATIENT
  Sex: Female
  Weight: 93.07 kg

DRUGS (6)
  1. EFFEXOR XR [Suspect]
     Indication: DEPRESSION
     Route: 065
     Dates: start: 20030701, end: 20030901
  2. EFFEXOR XR [Suspect]
     Indication: ANXIETY
     Route: 065
     Dates: start: 20030901
  3. EFFEXOR XR [Suspect]
     Route: 065
     Dates: start: 20060101, end: 20070101
  4. EFFEXOR XR [Suspect]
     Dosage: ^TRIED TO GET OFF^
     Route: 065
     Dates: start: 20070101
  5. ZYRTEC [Concomitant]
     Indication: SEASONAL ALLERGY
     Route: 065
     Dates: end: 20070101
  6. ZANTAC [Concomitant]
     Indication: GASTROOESOPHAGEAL REFLUX DISEASE
     Route: 065

REACTIONS (9)
  - DRUG DEPENDENCE [None]
  - DRUG INEFFECTIVE [None]
  - DRUG WITHDRAWAL SYNDROME [None]
  - FEAR [None]
  - FEELING ABNORMAL [None]
  - HYPERHIDROSIS [None]
  - MALAISE [None]
  - NIGHTMARE [None]
  - WEIGHT INCREASED [None]
